FAERS Safety Report 6195718-7 (Version None)
Quarter: 2009Q2

REPORT INFORMATION
  Report Type: 
  Country: None (occurrence: None)
  Receive Date: 20090520
  Receipt Date: 20071109
  Transmission Date: 20091009
  Serious: Yes (Death, Hospitalization, Other)
  Sender: FDA-Public Use
  Company Number: US-ASTRAZENECA-2006UW22251

PATIENT
  Age: 495 Month
  Sex: Male
  Weight: 131.5 kg

DRUGS (35)
  1. SEROQUEL [Suspect]
     Indication: ANXIETY
     Route: 048
     Dates: start: 20020101
  2. SEROQUEL [Suspect]
     Indication: SCHIZOAFFECTIVE DISORDER
     Route: 048
     Dates: start: 20020101
  3. SEROQUEL [Suspect]
     Dosage: 06-800 MG
     Route: 048
     Dates: start: 20020109
  4. SEROQUEL [Suspect]
     Dosage: 06-800 MG
     Route: 048
     Dates: start: 20020109
  5. CLOZARIL [Concomitant]
  6. HALDOL [Concomitant]
  7. RISPERDAL [Concomitant]
  8. THORAZINE [Concomitant]
  9. ZYPREXA [Concomitant]
  10. VALIUM [Concomitant]
  11. VIOXX [Concomitant]
  12. DEPAKOTE [Concomitant]
  13. HUMULIN 70/30 [Concomitant]
  14. GLUCOTROL [Concomitant]
  15. GLUCOPHAGE [Concomitant]
  16. VASOTEC [Concomitant]
  17. WELLBUTRIN [Concomitant]
  18. LITHIUM [Concomitant]
  19. REMERON [Concomitant]
  20. VYTORIN [Concomitant]
  21. AVANDIA [Concomitant]
  22. PROZAC [Concomitant]
  23. UNIVASC [Concomitant]
  24. VICODIN [Concomitant]
  25. ATIVAN [Concomitant]
  26. FENOFIBRATE [Concomitant]
  27. PROMETHAZINE [Concomitant]
  28. GEODON [Concomitant]
  29. TYLENOL [Concomitant]
  30. IBUPROFEN [Concomitant]
  31. CLARITIN [Concomitant]
  32. CEPHALEXIN [Concomitant]
  33. MONOPRIL [Concomitant]
  34. EFFEXOR XR [Concomitant]
  35. PREVACID [Concomitant]

REACTIONS (15)
  - BONE NEOPLASM [None]
  - CHONDROMATOSIS [None]
  - DEATH [None]
  - DEPRESSION [None]
  - DIABETIC KETOACIDOSIS [None]
  - ERYTHEMA [None]
  - HYPERKALAEMIA [None]
  - MUSCULOSKELETAL STIFFNESS [None]
  - OVERDOSE [None]
  - PANCREATITIS ACUTE [None]
  - PERITONITIS [None]
  - POSTOPERATIVE WOUND INFECTION [None]
  - SKIN ULCER [None]
  - SWELLING [None]
  - WOUND DEHISCENCE [None]
